FAERS Safety Report 9637498 (Version 1)
Quarter: 2013Q4

REPORT INFORMATION
  Report Type: Report from Study
  Country: CA (occurrence: CA)
  Receive Date: 20131022
  Receipt Date: 20131022
  Transmission Date: 20140711
  Serious: Yes (Other)
  Sender: FDA-Public Use
  Company Number: CA-JNJFOC-20131010106

PATIENT
  Age: 36 Year
  Sex: Female
  Weight: 68 kg

DRUGS (4)
  1. REMICADE [Suspect]
     Indication: ANKYLOSING SPONDYLITIS
     Route: 042
     Dates: start: 20091202
  2. EFFEXOR [Concomitant]
     Route: 065
  3. VITAMIN D [Concomitant]
     Route: 065
  4. JASMINE [Concomitant]
     Route: 065

REACTIONS (2)
  - Presyncope [Recovered/Resolved]
  - Hypertension [Recovered/Resolved]
